FAERS Safety Report 14957277 (Version 1)
Quarter: 2018Q2

REPORT INFORMATION
  Report Type: Spontaneous
  Country: FR (occurrence: FR)
  Receive Date: 20180531
  Receipt Date: 20180531
  Transmission Date: 20180711
  Serious: Yes (Hospitalization)
  Sender: FDA-Public Use
  Company Number: FR-TEVA-2018-FR-899652

PATIENT
  Age: 51 Year
  Sex: Female

DRUGS (11)
  1. SPECIAFOLDINE [Concomitant]
     Active Substance: FOLIC ACID
     Route: 065
  2. TIMOFEROL [Concomitant]
     Active Substance: ASCORBIC ACID\FERROUS SULFATE
     Route: 065
  3. SERESTA [Concomitant]
     Active Substance: OXAZEPAM
     Route: 065
  4. NORSET [Concomitant]
     Active Substance: MIRTAZAPINE
     Route: 065
  5. VALSARTAN. [Suspect]
     Active Substance: VALSARTAN
     Indication: HYPERTENSION
     Route: 048
     Dates: end: 201802
  6. KAYEXALATE [Concomitant]
     Active Substance: SODIUM POLYSTYRENE SULFONATE
     Route: 065
  7. DEPAKOTE [Suspect]
     Active Substance: DIVALPROEX SODIUM
     Indication: BIPOLAR DISORDER
     Dosage: 1000 MILLIGRAM DAILY;
     Route: 048
     Dates: start: 2014, end: 20180227
  8. OMEPRAZOLE. [Concomitant]
     Active Substance: OMEPRAZOLE
     Route: 065
  9. ZOLPIDEM [Concomitant]
     Active Substance: ZOLPIDEM\ZOLPIDEM TARTRATE
     Route: 065
  10. ADENURIC [Concomitant]
     Active Substance: FEBUXOSTAT
     Route: 065
  11. CODOLIPRANE ADULTES, COMPRIM? S?CABLE [Concomitant]
     Route: 065

REACTIONS (2)
  - Pancreatitis [Recovering/Resolving]
  - Anaemia macrocytic [Not Recovered/Not Resolved]

NARRATIVE: CASE EVENT DATE: 2014
